FAERS Safety Report 4665001-7 (Version None)
Quarter: 2005Q2

REPORT INFORMATION
  Report Type: 
  Country: None (occurrence: None)
  Receive Date: 20050517
  Receipt Date: 20050502
  Transmission Date: 20051028
  Serious: Yes (Death, Life-Threatening, Hospitalization, Disabling)
  Sender: FDA-Public Use
  Company Number: US_0501111259

PATIENT
  Age: 53 Year
  Sex: Male
  Weight: 65 kg

DRUGS (11)
  1. XIGRIS [Suspect]
     Indication: SEPSIS
     Dosage: 24 UG/KG/HR/36 HOURS
     Dates: start: 20050117, end: 20050119
  2. OMEPRAZOL (OMEPRAZOLE RATIOPHARM) [Concomitant]
  3. CEFTRIAXONE [Concomitant]
  4. METRONIDAZOLE [Concomitant]
  5. CHLORAMPHENICOL [Concomitant]
  6. TRAMADOL [Concomitant]
  7. ALBUMIN NOS [Concomitant]
  8. HYDROCORTISONE [Concomitant]
  9. VITAMIN K [Concomitant]
  10. CAPTOPRIL [Concomitant]
  11. TPN [Concomitant]

REACTIONS (9)
  - ACTIVATED PARTIAL THROMBOPLASTIN TIME PROLONGED [None]
  - BLOOD SODIUM INCREASED [None]
  - BRAIN OEDEMA [None]
  - CEREBRAL HAEMORRHAGE [None]
  - HAEMOGLOBIN DECREASED [None]
  - INTRAVENTRICULAR HAEMORRHAGE [None]
  - PLATELET COUNT INCREASED [None]
  - PROTHROMBIN TIME PROLONGED [None]
  - WHITE BLOOD CELL COUNT INCREASED [None]
